FAERS Safety Report 17816600 (Version 1)
Quarter: 2020Q2

REPORT INFORMATION
  Report Type: Spontaneous
  Country: US (occurrence: US)
  Receive Date: 20200522
  Receipt Date: 20200522
  Transmission Date: 20200714
  Serious: Yes (Hospitalization)
  Sender: FDA-Public Use
  Company Number: None

PATIENT
  Sex: Male
  Weight: 125.74 kg

DRUGS (2)
  1. CYTARABINE (63878) [Suspect]
     Active Substance: CYTARABINE
     Dates: end: 20200424
  2. RITUXIMAB (MOAB C2B8 ANTI CD20, CHIMERIC) [Suspect]
     Active Substance: RITUXIMAB
     Dates: end: 20200423

REACTIONS (13)
  - Sepsis [None]
  - Anaemia [None]
  - Bacteraemia [None]
  - Cellulitis [None]
  - Blood culture positive [None]
  - Febrile neutropenia [None]
  - Thrombocytopenia [None]
  - Acute kidney injury [None]
  - Pseudomonas test positive [None]
  - Limb injury [None]
  - Procalcitonin increased [None]
  - Traumatic ulcer [None]
  - Leukopenia [None]

NARRATIVE: CASE EVENT DATE: 20200503
